FAERS Safety Report 24623532 (Version 1)
Quarter: 2024Q4

REPORT INFORMATION
  Report Type: Spontaneous
  Country: GB (occurrence: GB)
  Receive Date: 20241115
  Receipt Date: 20241115
  Transmission Date: 20250115
  Serious: Yes (Other)
  Sender: RANBAXY
  Company Number: GB-SUN PHARMACEUTICAL INDUSTRIES LTD-2024RR-478762

PATIENT
  Age: 35 Year
  Sex: Male

DRUGS (1)
  1. SERTRALINE [Suspect]
     Active Substance: SERTRALINE HYDROCHLORIDE
     Indication: Depression
     Dosage: 100MG OM
     Route: 065
     Dates: start: 20240923, end: 20241026

REACTIONS (1)
  - Hepatitis [Not Recovered/Not Resolved]

NARRATIVE: CASE EVENT DATE: 20241026
